FAERS Safety Report 6097543-4 (Version None)
Quarter: 2009Q1

REPORT INFORMATION
  Report Type: 
  Country: None (occurrence: None)
  Receive Date: 20090227
  Receipt Date: 20090107
  Transmission Date: 20090719
  Serious: No
  Sender: FDA-Public Use
  Company Number: A0751141A

PATIENT
  Age: 63 Year
  Sex: Female

DRUGS (5)
  1. IMITREX [Suspect]
     Indication: MIGRAINE
     Dosage: 6MG AS REQUIRED
     Route: 058
     Dates: start: 19920101
  2. EFFEXOR [Concomitant]
  3. ALLERGY MEDICATION [Concomitant]
  4. BLOOD PRESSURE MEDICATION [Concomitant]
  5. TRICOR [Concomitant]

REACTIONS (2)
  - INJECTION SITE IRRITATION [None]
  - PRODUCT QUALITY ISSUE [None]
